FAERS Safety Report 6637661-2 (Version None)
Quarter: 2010Q1

REPORT INFORMATION
  Report Type: 
  Country: None (occurrence: None)
  Receive Date: 20100317
  Receipt Date: 20100302
  Transmission Date: 20100710
  Serious: Yes (Hospitalization, Other)
  Sender: FDA-Public Use
  Company Number: US-TYCO HEALTHCARE/MALLINCKRODT-T201000810

PATIENT
  Age: 71 Year
  Sex: Male

DRUGS (2)
  1. FENTANYL [Suspect]
     Dosage: 100 MCG/ HOUR TRANSDERMAL PATCH
     Route: 062
  2. OXYCODONE HCL AND ACETAMINOPHEN [Concomitant]
     Dosage: UNK

REACTIONS (3)
  - DRUG PRESCRIBING ERROR [None]
  - EDUCATIONAL PROBLEM [None]
  - UNEVALUABLE EVENT [None]
